FAERS Safety Report 4867404-4 (Version None)
Quarter: 2005Q4

REPORT INFORMATION
  Report Type: 
  Country: None (occurrence: None)
  Receive Date: 20051222
  Receipt Date: 20051222
  Transmission Date: 20060501
  Serious: Yes (Death)
  Sender: FDA-Public Use
  Company Number: None

PATIENT
  Age: 46 Year
  Sex: Male
  Weight: 86.1834 kg

DRUGS (2)
  1. PAXIL [Suspect]
     Indication: DEPRESSION
     Dosage: ONE CAPSULE DAILY PO
     Route: 048
     Dates: start: 20050830, end: 20051030
  2. CAMPRAL [Suspect]
     Indication: ALCOHOLISM
     Dosage: PO
     Route: 048
     Dates: start: 20050901, end: 20051001

REACTIONS (2)
  - COMPLETED SUICIDE [None]
  - DELUSION [None]
